FAERS Safety Report 7929221-8 (Version None)
Quarter: 2011Q4

REPORT INFORMATION
  Report Type: 
  Country: None (occurrence: None)
  Receive Date: 20111121
  Receipt Date: 20111114
  Transmission Date: 20120403
  Serious: Yes (Other)
  Sender: FDA-Public Use
  Company Number: US-BRISTOL-MYERS SQUIBB COMPANY-16229585

PATIENT
  Age: 53 Year
  Sex: Female

DRUGS (1)
  1. SUSTIVA [Suspect]

REACTIONS (2)
  - TUBERCULOSIS [None]
  - HEPATIC ENZYME INCREASED [None]
